FAERS Safety Report 11209184 (Version 1)
Quarter: 2015Q2

REPORT INFORMATION
  Report Type: Spontaneous
  Country: US (occurrence: US)
  Receive Date: 20150622
  Receipt Date: 20150622
  Transmission Date: 20150821
  Serious: No
  Sender: FDA-Public Use
  Company Number: US-GLAXOSMITHKLINE-US2015087250

PATIENT
  Age: 19 Year
  Sex: Male

DRUGS (1)
  1. ABREVA [Suspect]
     Active Substance: DOCOSANOL
     Indication: ORAL HERPES
     Dosage: UNK
     Dates: start: 20150604, end: 20150605

REACTIONS (3)
  - Drug administration error [Unknown]
  - Oral herpes [Not Recovered/Not Resolved]
  - Condition aggravated [Recovered/Resolved]
